FAERS Safety Report 26094509 (Version 1)
Quarter: 2025Q4

REPORT INFORMATION
  Report Type: Spontaneous
  Country: EU (occurrence: EU)
  Receive Date: 20251126
  Receipt Date: 20251126
  Transmission Date: 20260117
  Serious: Yes (Hospitalization)
  Sender: MERCK SHARP & DOHME LLC
  Company Number: None

PATIENT
  Age: 66 Year
  Sex: Female

DRUGS (3)
  1. KEYTRUDA [Suspect]
     Active Substance: PEMBROLIZUMAB
     Indication: Lung carcinoma cell type unspecified stage I
     Dosage: 200 MG ONCE A WEEK
     Route: 065
  2. Alimta 100 MG [Concomitant]
     Dosage: 960 MG ONCE A WEEK
  3. ZOLEDRONIC ACID - CONCENTRATE FOR SOLUTION FOR INFUSION [Concomitant]

REACTIONS (3)
  - Ileus [Not Recovered/Not Resolved]
  - Acute kidney injury [Not Recovered/Not Resolved]
  - Colitis [Not Recovered/Not Resolved]

NARRATIVE: CASE EVENT DATE: 20210701
